FAERS Safety Report 4812385-2 (Version None)
Quarter: 2005Q4

REPORT INFORMATION
  Report Type: 
  Country: None (occurrence: None)
  Receive Date: 20051028
  Receipt Date: 20050121
  Transmission Date: 20060501
  Serious: No
  Sender: FDA-Public Use
  Company Number: US-GLAXOSMITHKLINE-A0541758A

PATIENT
  Sex: Female

DRUGS (4)
  1. ADVAIR DISKUS 100/50 [Suspect]
     Indication: ASTHMA
     Dosage: 1PUFF TWICE PER DAY
     Route: 055
     Dates: start: 20050118
  2. SINGULAIR [Concomitant]
  3. STEROID CREAM [Concomitant]
     Indication: ECZEMA
     Route: 065
  4. BIRTH CONTROL [Concomitant]
     Route: 065

REACTIONS (2)
  - LOCAL SWELLING [None]
  - THROAT TIGHTNESS [None]
